FAERS Safety Report 19319817 (Version 1)
Quarter: 2021Q2

REPORT INFORMATION
  Report Type: Spontaneous
  Country: US (occurrence: US)
  Receive Date: 20210527
  Receipt Date: 20210527
  Transmission Date: 20210717
  Serious: Yes (Death, Other)
  Sender: FDA-Public Use
  Company Number: US-GLAXOSMITHKLINE-US2021GSK114732

PATIENT
  Sex: Female

DRUGS (4)
  1. ZANTAC [Suspect]
     Active Substance: RANITIDINE HYDROCHLORIDE
     Dosage: UNK UNK, WE
     Route: 065
     Dates: start: 200011, end: 201909
  2. RANITIDINE. [Suspect]
     Active Substance: RANITIDINE
     Dosage: UNK, WE
     Route: 065
     Dates: start: 200011, end: 201909
  3. RANITIDINE. [Suspect]
     Active Substance: RANITIDINE
     Dosage: UNK, WE
     Route: 065
     Dates: start: 200011, end: 201909
  4. ZANTAC [Suspect]
     Active Substance: RANITIDINE HYDROCHLORIDE
     Dosage: UNK UNK, WE
     Route: 065
     Dates: start: 200011, end: 201909

REACTIONS (1)
  - Gastric cancer [Fatal]
